FAERS Safety Report 5795265-8 (Version None)
Quarter: 2008Q2

REPORT INFORMATION
  Report Type: 
  Country: None (occurrence: None)
  Receive Date: 20080626
  Receipt Date: 20080619
  Transmission Date: 20081010
  Serious: Yes (Other)
  Sender: FDA-Public Use
  Company Number: A0734128A

PATIENT
  Age: 76 Year
  Sex: Female

DRUGS (16)
  1. ASPIRIN [Suspect]
     Indication: DRUG USE FOR UNKNOWN INDICATION
     Dosage: ORAL
     Route: 048
     Dates: start: 19980101
  2. MEMANTINE HCL [Concomitant]
  3. EZETIMIBE [Concomitant]
  4. CONJUGATED ESTROGENS [Concomitant]
  5. FOSINOPRIL SODIUM [Concomitant]
  6. HYDROCHLOROTHIAZIDE [Concomitant]
  7. NON-GSK PROPRANOLOL HCL [Concomitant]
  8. OMEPRAZOLE [Concomitant]
  9. AMLODIPINE [Concomitant]
  10. QUETIAPINE FUMARATE [Concomitant]
  11. ATORVASTATIN CALCIUM [Concomitant]
  12. ALPRAZOLAM [Concomitant]
  13. WARFARIN SODIUM [Concomitant]
  14. LACTULOSE [Concomitant]
  15. FUROSEMIDE [Concomitant]
  16. POTASSIUM SALT [Concomitant]

REACTIONS (3)
  - CHOKING [None]
  - EXPIRED DRUG ADMINISTERED [None]
  - SENSATION OF FOREIGN BODY [None]
